FAERS Safety Report 4560085-9 (Version None)
Quarter: 2005Q1

REPORT INFORMATION
  Report Type: 
  Country: None (occurrence: None)
  Receive Date: 20050120
  Receipt Date: 20050120
  Transmission Date: 20050727
  Serious: Yes (Other)
  Sender: FDA-Public Use
  Company Number: None

PATIENT
  Age: 62 Year
  Sex: Female

DRUGS (8)
  1. OMEPRAZOLE [Suspect]
     Indication: GASTROOESOPHAGEAL REFLUX DISEASE
     Dosage: 1 CAPSULE BY MOUTH TWICE DAILY
     Route: 048
     Dates: start: 20050101, end: 20050114
  2. PROVENTIL [Concomitant]
  3. ADVAIR DISKUS 100/50 [Concomitant]
  4. MOBIC [Concomitant]
  5. MAVIK [Concomitant]
  6. REGLAN [Concomitant]
  7. HYDROCHLOROTHIAZIDE [Concomitant]
  8. FORTEO [Concomitant]

REACTIONS (6)
  - CHEST PAIN [None]
  - DISEASE RECURRENCE [None]
  - DRUG INEFFECTIVE [None]
  - ERUCTATION [None]
  - GASTROOESOPHAGEAL REFLUX DISEASE [None]
  - PHARMACEUTICAL PRODUCT COMPLAINT [None]
